FAERS Safety Report 4348151-4 (Version None)
Quarter: 2004Q1

REPORT INFORMATION
  Report Type: 
  Country: None (occurrence: None)
  Receive Date: 20040325
  Receipt Date: 20040211
  Transmission Date: 20041129
  Serious: No
  Sender: FDA-Public Use
  Company Number: USA040259182

PATIENT
  Age: 62 Year
  Sex: Female

DRUGS (2)
  1. FORTEO [Suspect]
     Indication: PELVIC FRACTURE
     Dosage: 20 UG/DAY
     Dates: start: 20040101
  2. CELEBREX [Concomitant]

REACTIONS (2)
  - PARAESTHESIA [None]
  - SENSORY DISTURBANCE [None]
